FAERS Safety Report 8003003-3 (Version None)
Quarter: 2011Q4

REPORT INFORMATION
  Report Type: 
  Country: None (occurrence: None)
  Receive Date: 20111222
  Receipt Date: 20110810
  Transmission Date: 20120403
  Serious: No
  Sender: FDA-Public Use
  Company Number: US-GLAXOSMITHKLINE-A0940379A

PATIENT
  Age: 87 Year
  Sex: Male
  Weight: 75.5 kg

DRUGS (9)
  1. MULTI-VITAMINS [Concomitant]
     Route: 048
     Dates: start: 20060101
  2. VITAMIN B COMPLEX CAP [Concomitant]
     Route: 048
     Dates: start: 20060101
  3. COQ10 [Concomitant]
     Dosage: 75MGD PER DAY
     Route: 048
     Dates: start: 20060101
  4. ASPIRIN [Concomitant]
     Dosage: 81MGD PER DAY
     Route: 048
     Dates: start: 20010101
  5. PRILOSEC [Concomitant]
     Indication: GASTROOESOPHAGEAL REFLUX DISEASE
     Dosage: 20MGD PER DAY
     Route: 048
     Dates: start: 20070101
  6. AVODART [Suspect]
     Indication: BENIGN PROSTATIC HYPERPLASIA
     Dosage: .5MG PER DAY
     Route: 048
     Dates: start: 20090101
  7. OSCAL [Concomitant]
     Route: 048
     Dates: start: 20070101
  8. FLOMAX [Concomitant]
     Indication: BENIGN PROSTATIC HYPERPLASIA
     Dosage: .4MGD PER DAY
     Route: 048
     Dates: start: 20030101
  9. LIPITOR [Concomitant]
     Indication: HYPERLIPIDAEMIA
     Dosage: 20MGD PER DAY
     Route: 048
     Dates: start: 20080101

REACTIONS (1)
  - BREAST ENLARGEMENT [None]
